FAERS Safety Report 5097705-9 (Version None)
Quarter: 2006Q3

REPORT INFORMATION
  Report Type: 
  Country: None (occurrence: None)
  Receive Date: 20060901
  Receipt Date: 20060814
  Transmission Date: 20061208
  Serious: Yes (Hospitalization)
  Sender: FDA-Public Use
  Company Number: US200608002979

PATIENT
  Age: 42 Year
  Sex: Female

DRUGS (2)
  1. CYMBALTA [Suspect]
     Indication: FIBROMYALGIA
     Dosage: 40 MG, OTHER
     Dates: start: 20050901, end: 20060501
  2. HYOSCYAMINE (HYOSCYAMINE) [Concomitant]

REACTIONS (1)
  - UTERINE NEOPLASM [None]
